FAERS Safety Report 7572905-4 (Version None)
Quarter: 2011Q2

REPORT INFORMATION
  Report Type: 
  Country: None (occurrence: None)
  Receive Date: 20110627
  Receipt Date: 20110620
  Transmission Date: 20111010
  Serious: Yes (Other)
  Sender: FDA-Public Use
  Company Number: GB-ELI_LILLY_AND_COMPANY-GB201106005891

PATIENT
  Age: 49 Year
  Sex: Female

DRUGS (3)
  1. TRAZODONE HCL [Concomitant]
     Dosage: UNK
  2. FLUOXETINE HCL [Concomitant]
     Dosage: UNK
     Dates: end: 20081101
  3. ZYPREXA [Suspect]
     Dosage: UNK
     Dates: start: 20071101

REACTIONS (1)
  - ENDOMETRIAL CANCER [None]
